FAERS Safety Report 14409259 (Version 1)
Quarter: 2018Q1

REPORT INFORMATION
  Report Type: Spontaneous
  Country: US (occurrence: US)
  Receive Date: 20180119
  Receipt Date: 20180119
  Transmission Date: 20180509
  Serious: Yes (Other)
  Sender: FDA-Public Use
  Company Number: US-ASTRAZENECA-2017SF29223

PATIENT
  Age: 20192 Day
  Sex: Female

DRUGS (23)
  1. BYDUREON [Suspect]
     Active Substance: EXENATIDE
     Indication: GLYCOSYLATED HAEMOGLOBIN INCREASED
     Route: 058
     Dates: start: 20171104
  2. SYNTHROID [Concomitant]
     Active Substance: LEVOTHYROXINE SODIUM
     Route: 048
  3. LASIX [Concomitant]
     Active Substance: FUROSEMIDE
  4. ALDACTONE [Concomitant]
     Active Substance: SPIRONOLACTONE
     Route: 048
  5. COMBIGAN [Concomitant]
     Active Substance: BRIMONIDINE TARTRATE\TIMOLOL MALEATE
     Dosage: 0.2-0.5 PERCENT, INSTILL 1 DRO IN LEFT EYE
     Route: 047
  6. HUMULIN R [Concomitant]
     Active Substance: INSULIN HUMAN
     Dosage: 0.30 ML BREAKFAST, 0.15 NL LUNCH, 0.1 ML SUPPER. 0.5 TO 0.5 ML BEDTIME
     Route: 058
  7. XANAX [Concomitant]
     Active Substance: ALPRAZOLAM
     Route: 048
  8. ALTACE [Concomitant]
     Active Substance: RAMIPRIL
     Route: 048
  9. TIAZAC [Concomitant]
     Active Substance: DILTIAZEM HYDROCHLORIDE
     Route: 048
  10. ZETIA [Concomitant]
     Active Substance: EZETIMIBE
     Route: 048
  11. ADVIL [Concomitant]
     Active Substance: IBUPROFEN
     Route: 048
  12. TYLENOL [Concomitant]
     Active Substance: ACETAMINOPHEN
     Dosage: 500 MG TABLET EVERY 6 HOURS AS NEEDED
     Route: 048
  13. ECOTRIN [Concomitant]
     Active Substance: ASPIRIN
     Route: 048
  14. GLUCAGON. [Concomitant]
     Active Substance: GLUCAGON
     Route: 065
  15. BENADRYL [Concomitant]
     Active Substance: DIPHENHYDRAMINE HYDROCHLORIDE
     Dosage: 50 MG BY MOUTH EVERY 4 TO 6 HOURS AS NEEDED
     Route: 048
  16. TRIAMCINOLONE ACETONIDE. [Concomitant]
     Active Substance: TRIAMCINOLONE ACETONIDE
     Route: 061
  17. WELLBUTRIN SR [Concomitant]
     Active Substance: BUPROPION HYDROCHLORIDE
     Route: 048
  18. CRANBERRY. [Concomitant]
     Active Substance: CRANBERRY
     Route: 048
  19. TOPROL XL [Suspect]
     Active Substance: METOPROLOL SUCCINATE
     Route: 048
  20. HUMULIN 500 INSULIN [Concomitant]
     Dosage: SLIDING SCALE DOSE, THREE TIMES A DAY, FOR YEARS
     Route: 058
  21. NITROSTAT [Concomitant]
     Active Substance: NITROGLYCERIN
     Dosage: 1 TAB UBDER TONGUE AS NEEDED FOR CHEST PAIN, MAY REPEAT EVERY 5 MINUTES FOR TOTAL 3 DOSES
     Route: 060
  22. CRESTOR [Concomitant]
     Active Substance: ROSUVASTATIN CALCIUM
     Route: 048
  23. BIOTIN [Concomitant]
     Active Substance: BIOTIN
     Route: 048

REACTIONS (8)
  - Injection site swelling [Unknown]
  - Lip swelling [Not Recovered/Not Resolved]
  - Injection site erythema [Unknown]
  - Urticaria [Not Recovered/Not Resolved]
  - Injection site pruritus [Unknown]
  - Nausea [Recovered/Resolved]
  - Injection site haemorrhage [Recovered/Resolved]
  - Nausea [Not Recovered/Not Resolved]

NARRATIVE: CASE EVENT DATE: 20171216
